FAERS Safety Report 16162162 (Version 1)
Quarter: 2019Q2

REPORT INFORMATION
  Report Type: Spontaneous
  Country: IT (occurrence: IT)
  Receive Date: 20190405
  Receipt Date: 20190405
  Transmission Date: 20190711
  Serious: Yes (Disabling)
  Sender: FDA-Public Use
  Company Number: IT-AUROBINDO-AUR-APL-2019-017593

PATIENT

DRUGS (1)
  1. LEVOFLOXACIN FILMCOATED TABLET [Suspect]
     Active Substance: LEVOFLOXACIN
     Indication: INFLUENZA
     Dosage: 500 MILLIGRAM, AS NECESSARY
     Route: 048
     Dates: start: 20180101, end: 20190110

REACTIONS (7)
  - Fatigue [Not Recovered/Not Resolved]
  - Tendon discomfort [Not Recovered/Not Resolved]
  - Feeling cold [Not Recovered/Not Resolved]
  - Skin burning sensation [Not Recovered/Not Resolved]
  - Reversed hot-cold sensation [Not Recovered/Not Resolved]
  - Myalgia [Not Recovered/Not Resolved]
  - Periarthritis [Not Recovered/Not Resolved]

NARRATIVE: CASE EVENT DATE: 20180101
